FAERS Safety Report 4475514-9 (Version None)
Quarter: 2004Q4

REPORT INFORMATION
  Report Type: 
  Country: None (occurrence: None)
  Receive Date: 20041015
  Receipt Date: 20041012
  Transmission Date: 20050328
  Serious: Yes (Other)
  Sender: FDA-Public Use
  Company Number: DE-MERCK-0410DEU00388

PATIENT
  Age: 52 Year
  Sex: Female

DRUGS (6)
  1. [THERAPY UNSPECIFIED] [Concomitant]
     Indication: HYPERTENSION
     Route: 065
  2. PLAVIX [Concomitant]
     Route: 065
  3. L-THYROXIN [Concomitant]
     Route: 065
  4. BELOC-ZOK [Concomitant]
     Route: 065
  5. VIOXX [Suspect]
     Indication: OSTEOARTHRITIS
     Route: 048
     Dates: start: 20000101, end: 20041001
  6. VIOXX [Suspect]
     Indication: PAIN IN EXTREMITY
     Route: 048
     Dates: start: 20000101, end: 20041001

REACTIONS (5)
  - DYSPNOEA [None]
  - ERYTHEMA [None]
  - PARALYSIS [None]
  - SOMNOLENCE [None]
  - TACHYCARDIA [None]
